FAERS Safety Report 14008002 (Version 1)
Quarter: 2017Q3

REPORT INFORMATION
  Report Type: Spontaneous
  Country: US (occurrence: None)
  Receive Date: 20170922
  Receipt Date: 20170922
  Transmission Date: 20171128
  Serious: Yes (Other)
  Sender: FDA-Public Use
  Company Number: None

PATIENT
  Age: 78 Year
  Sex: Male
  Weight: 144.3 kg

DRUGS (1)
  1. COMFORT SHIELD BARRIER [Suspect]
     Active Substance: DIMETHICONE
     Dates: start: 20170804, end: 20170825

REACTIONS (3)
  - Product use issue [None]
  - Burkholderia test positive [None]
  - Bacteraemia [None]

NARRATIVE: CASE EVENT DATE: 20170901
